FAERS Safety Report 8171554-7 (Version None)
Quarter: 2012Q1

REPORT INFORMATION
  Report Type: 
  Country: None (occurrence: None)
  Receive Date: 20120228
  Receipt Date: 20120227
  Transmission Date: 20120608
  Serious: Yes (Other)
  Sender: FDA-Public Use
  Company Number: US-PFIZER INC-2012051150

PATIENT
  Sex: Female
  Weight: 43.084 kg

DRUGS (1)
  1. IBUPROFEN (ADVIL) [Suspect]
     Indication: ABDOMINAL PAIN UPPER
     Dosage: TWO TABLETS OF 200MG, UNK
     Route: 048
     Dates: start: 20120222, end: 20120226

REACTIONS (19)
  - EXPIRED DRUG ADMINISTERED [None]
  - OROPHARYNGEAL PAIN [None]
  - CONFUSIONAL STATE [None]
  - PYREXIA [None]
  - HYPOAESTHESIA [None]
  - DIZZINESS [None]
  - HEMIPARESIS [None]
  - TINNITUS [None]
  - NAUSEA [None]
  - ARTHRALGIA [None]
  - DIARRHOEA [None]
  - MOOD ALTERED [None]
  - ABDOMINAL PAIN UPPER [None]
  - HEADACHE [None]
  - WEIGHT INCREASED [None]
  - FATIGUE [None]
  - DYSPNOEA [None]
  - CHEST DISCOMFORT [None]
  - SKIN EXFOLIATION [None]
